FAERS Safety Report 18010617 (Version 1)
Quarter: 2020Q3

REPORT INFORMATION
  Report Type: Spontaneous
  Country: JP (occurrence: JP)
  Receive Date: 20200710
  Receipt Date: 20200710
  Transmission Date: 20201103
  Serious: Yes (Death, Hospitalization, Other)
  Sender: FDA-Public Use
  Company Number: JP-JNJFOC-20200641580

PATIENT
  Age: 58 Year
  Sex: Male

DRUGS (7)
  1. REXULTI [Suspect]
     Active Substance: BREXPIPRAZOLE
     Indication: SCHIZOPHRENIA
     Route: 048
     Dates: start: 20200117, end: 20200119
  2. SERENACE [Concomitant]
     Active Substance: HALOPERIDOL
     Dates: end: 202001
  3. LEVOTOMIN                          /00038602/ [Concomitant]
     Active Substance: LEVOMEPROMAZINE
     Indication: PRODUCT USED FOR UNKNOWN INDICATION
     Route: 065
     Dates: start: 20190527, end: 202001
  4. ZOTEPINE [Concomitant]
     Active Substance: ZOTEPINE
     Route: 065
     Dates: start: 20190307, end: 20200202
  5. RISPERDAL [Suspect]
     Active Substance: RISPERIDONE
     Indication: PRODUCT USED FOR UNKNOWN INDICATION
     Route: 048
     Dates: start: 20190523, end: 20200202
  6. RISPERDAL [Suspect]
     Active Substance: RISPERIDONE
     Route: 048
     Dates: start: 20190410, end: 20190522
  7. OLANZAPINE. [Concomitant]
     Active Substance: OLANZAPINE
     Indication: PRODUCT USED FOR UNKNOWN INDICATION
     Dates: start: 202001

REACTIONS (3)
  - Serotonin syndrome [Fatal]
  - Septic shock [Fatal]
  - Respiratory depression [Fatal]

NARRATIVE: CASE EVENT DATE: 20200202
